FAERS Safety Report 9888016 (Version 1)
Quarter: 2014Q1

REPORT INFORMATION
  Report Type: Spontaneous
  Country: US (occurrence: US)
  Receive Date: 20140211
  Receipt Date: 20140211
  Transmission Date: 20141002
  Serious: Yes (Death, Other)
  Sender: FDA-Public Use
  Company Number: PHHY2014US015727

PATIENT
  Age: 55 Year
  Sex: Male

DRUGS (4)
  1. CICLOSPORIN [Suspect]
     Indication: PROPHYLAXIS AGAINST GRAFT VERSUS HOST DISEASE
  2. AZATHIOPRINE [Suspect]
     Indication: PROPHYLAXIS AGAINST GRAFT VERSUS HOST DISEASE
  3. MYCOPHENOLATE MOFETIL [Suspect]
     Indication: PROPHYLAXIS AGAINST GRAFT VERSUS HOST DISEASE
  4. PREDNISONE [Suspect]
     Indication: PROPHYLAXIS AGAINST GRAFT VERSUS HOST DISEASE

REACTIONS (10)
  - Metastases to lung [Fatal]
  - Ascites [Fatal]
  - Lung neoplasm [Fatal]
  - Pulmonary mass [Fatal]
  - Asthenia [Fatal]
  - Hepatic neoplasm [Fatal]
  - Abdominal pain [Fatal]
  - Jaundice [Fatal]
  - Weight decreased [Fatal]
  - Epstein-Barr virus infection [Unknown]
